FAERS Safety Report 4374068-5 (Version None)
Quarter: 2004Q2

REPORT INFORMATION
  Report Type: 
  Country: None (occurrence: None)
  Receive Date: 20040607
  Receipt Date: 20040527
  Transmission Date: 20050107
  Serious: Yes (Other)
  Sender: FDA-Public Use
  Company Number: JP-JNJFOC-20040506900

PATIENT
  Age: 75 Year
  Sex: Female

DRUGS (7)
  1. ITRIZOLE [Suspect]
     Indication: CANDIDIASIS
     Route: 049
  2. GEBEN [Suspect]
     Indication: DRUG USE FOR UNKNOWN INDICATION
     Route: 061
  3. VANCOMYCIN HYDROCHLORIDE [Concomitant]
  4. TAKEPRON [Concomitant]
  5. MEROPEN [Concomitant]
  6. AMIKAMYCIN [Concomitant]
  7. CONIEL [Concomitant]

REACTIONS (1)
  - LEUKOPENIA [None]
